FAERS Safety Report 10143237 (Version 1)
Quarter: 2014Q2

REPORT INFORMATION
  Report Type: Spontaneous
  Country: NL (occurrence: NL)
  Receive Date: 20140430
  Receipt Date: 20140430
  Transmission Date: 20141212
  Serious: Yes (Death, Other)
  Sender: FDA-Public Use
  Company Number: NL-ROXANE LABORATORIES, INC.-2014-RO-00664RO

PATIENT
  Age: 56 Year
  Sex: Male

DRUGS (3)
  1. MYCOPHENOLATE MOFETIL [Suspect]
     Indication: RENAL TRANSPLANT
     Route: 065
  2. TACROLIMUS [Suspect]
     Indication: RENAL TRANSPLANT
     Route: 065
  3. PREDNISOLONE [Suspect]
     Indication: RENAL TRANSPLANT
     Route: 065

REACTIONS (7)
  - Metastatic carcinoma of the bladder [Fatal]
  - Neoplasm progression [Fatal]
  - BK virus infection [Unknown]
  - Ureteric stenosis [Unknown]
  - Escherichia test positive [Unknown]
  - Deep vein thrombosis [Unknown]
  - Arterial thrombosis [Unknown]
